FAERS Safety Report 11797064 (Version 6)
Quarter: 2017Q2

REPORT INFORMATION
  Report Type: Spontaneous
  Country: US (occurrence: US)
  Receive Date: 20151203
  Receipt Date: 20170518
  Transmission Date: 20170829
  Serious: Yes (Death, Hospitalization, Other)
  Sender: FDA-Public Use
  Company Number: US-PFIZER INC-2015409454

PATIENT
  Age: 71 Year
  Sex: Female
  Weight: 64 kg

DRUGS (20)
  1. IBRANCE [Suspect]
     Active Substance: PALBOCICLIB
     Dosage: 125 MG, CYCLIC (1 CAPSULE BY MOUTH FOR 21 DAYS THEN OFF FOR 7 DAYS)
     Route: 048
     Dates: start: 20151005
  2. XARELTO [Suspect]
     Active Substance: RIVAROXABAN
     Dosage: 15 MG, 2X/DAY
     Route: 048
     Dates: start: 20151113
  3. TYLENOL [Concomitant]
     Active Substance: ACETAMINOPHEN
     Dosage: 500 MG, EVERY 6 HOURS AS NEEDED
     Route: 048
  4. IBRANCE [Suspect]
     Active Substance: PALBOCICLIB
     Dosage: 125 MG, CYCLIC (1 CAPSULE BY MOUTH FOR 21 DAYS THEN OFF FOR 7 DAYS)
     Route: 048
     Dates: start: 20151005
  5. XGEVA [Concomitant]
     Active Substance: DENOSUMAB
     Dosage: UNK
  6. PRINIVIL [Concomitant]
     Active Substance: LISINOPRIL
     Dosage: 5 MG DAILY AS NEEDED
     Route: 048
     Dates: start: 20150916
  7. NORCO [Concomitant]
     Active Substance: ACETAMINOPHEN\HYDROCODONE BITARTRATE
     Dosage: [HYDROCODONE BITARTRATE 7.5 MG]/[PARACETAMOL 325 MG], EVERY 6 HOURS AS NEEDED
     Route: 048
     Dates: start: 20151223
  8. MIRALAX [Concomitant]
     Active Substance: POLYETHYLENE GLYCOL 3350
     Dosage: 17 G, DAILY
     Route: 048
  9. LASIX [Concomitant]
     Active Substance: FUROSEMIDE
     Dosage: 20 MG, EVERY 2 DAYS AS NEEDED
     Route: 048
  10. VENTOLIN HFA [Concomitant]
     Active Substance: ALBUTEROL SULFATE
     Dosage: 1-2 PUFF INHALATION AEROSOL AS NEEDED EVERY 6 HOURS
     Route: 045
     Dates: start: 20150721
  11. COMPAZINE [Concomitant]
     Active Substance: PROCHLORPERAZINE MALEATE
     Dosage: 10 MG, EVERY 6 HOURS AS NEEDED
     Route: 048
  12. SYMBICORT [Concomitant]
     Active Substance: BUDESONIDE\FORMOTEROL FUMARATE DIHYDRATE
     Dosage: 2 PUFF INHALATION, TWICE DAILY
     Route: 055
  13. LETROZOLE. [Suspect]
     Active Substance: LETROZOLE
     Dosage: UNK
  14. ASPIRIN. [Suspect]
     Active Substance: ASPIRIN
     Dosage: UNK
  15. IBRANCE [Suspect]
     Active Substance: PALBOCICLIB
     Indication: BREAST CANCER METASTATIC
     Dosage: 125 MG, DAILY
     Route: 048
     Dates: start: 20150930, end: 2015
  16. PROCHLORPERAZINE. [Concomitant]
     Active Substance: PROCHLORPERAZINE
     Dosage: 10 MG, DAILY
     Route: 048
     Dates: start: 20151007
  17. FEMARA [Concomitant]
     Active Substance: LETROZOLE
     Dosage: 2.5 MG, DAILY (1 QD)
     Route: 048
     Dates: start: 20141002
  18. XANAX [Concomitant]
     Active Substance: ALPRAZOLAM
     Dosage: 0.25 MG, FOUR TIMES DAILY
     Route: 048
     Dates: start: 20141002
  19. COLACE [Concomitant]
     Active Substance: DOCUSATE SODIUM
     Dosage: 100 MG, 1X/DAY (EVERY NIGHT)
     Route: 048
  20. PEPCID [Concomitant]
     Active Substance: FAMOTIDINE
     Dosage: 20 MG, DAILY
     Dates: start: 20151116

REACTIONS (25)
  - Peripheral swelling [Unknown]
  - Pain in extremity [Unknown]
  - Gastritis [Unknown]
  - Back pain [Recovering/Resolving]
  - Pulmonary embolism [Unknown]
  - Upper gastrointestinal haemorrhage [Unknown]
  - Cardiac failure congestive [Unknown]
  - Clumsiness [Unknown]
  - Constipation [Unknown]
  - Nausea [Unknown]
  - Dyspnoea [Recovering/Resolving]
  - Deep vein thrombosis [Unknown]
  - Pancytopenia [Unknown]
  - Epistaxis [Recovered/Resolved]
  - Death [Fatal]
  - Cerebrovascular accident [Unknown]
  - Musculoskeletal stiffness [Unknown]
  - Asthenia [Unknown]
  - Hypophosphataemia [Unknown]
  - Anaemia [Unknown]
  - Headache [Unknown]
  - Dysarthria [Unknown]
  - Respiratory failure [Unknown]
  - Facial paralysis [Unknown]
  - Anxiety [Unknown]

NARRATIVE: CASE EVENT DATE: 20151223
